FAERS Safety Report 11777655 (Version 1)
Quarter: 2015Q4

REPORT INFORMATION
  Report Type: Spontaneous
  Country: FR (occurrence: FR)
  Receive Date: 20151125
  Receipt Date: 20151125
  Transmission Date: 20160304
  Serious: Yes (Death)
  Sender: FDA-Public Use
  Company Number: PHHY2015FR151925

PATIENT
  Age: 44 Year
  Sex: Male

DRUGS (5)
  1. TASIGNA [Suspect]
     Active Substance: NILOTINIB
     Indication: CHRONIC MYELOID LEUKAEMIA
     Dosage: UNK
     Route: 048
     Dates: start: 201202
  2. SPRYCEL [Suspect]
     Active Substance: DASATINIB
     Indication: CHRONIC MYELOID LEUKAEMIA
     Dosage: UNK
     Route: 048
     Dates: end: 201407
  3. HYDREA [Suspect]
     Active Substance: HYDROXYUREA
     Indication: CHRONIC MYELOID LEUKAEMIA
     Dosage: UNK
     Route: 048
     Dates: start: 201407, end: 201409
  4. INTERFERON [Suspect]
     Active Substance: INTERFERON
     Indication: CHRONIC MYELOID LEUKAEMIA
     Dosage: UNK
     Route: 058
     Dates: start: 20140923
  5. GLIVEC [Suspect]
     Active Substance: IMATINIB MESYLATE
     Indication: CHRONIC MYELOID LEUKAEMIA
     Dosage: 400 MG, QD
     Route: 048
     Dates: start: 20071212, end: 201202

REACTIONS (5)
  - Spinal pain [Fatal]
  - Cerebrovascular accident [Fatal]
  - Psychomotor hyperactivity [Fatal]
  - General physical health deterioration [Fatal]
  - Leukocytosis [Fatal]

NARRATIVE: CASE EVENT DATE: 20141001
